FAERS Safety Report 8300308-3 (Version None)
Quarter: 2012Q1

REPORT INFORMATION
  Report Type: 
  Country: None (occurrence: None)
  Receive Date: 20120326
  Receipt Date: 20110610
  Transmission Date: 20120608
  Serious: Yes (Other)
  Sender: FDA-Public Use
  Company Number: PHHY2011US47414

PATIENT

DRUGS (1)
  1. TASIGNA [Suspect]

REACTIONS (1)
  - LEUKAEMIA RECURRENT [None]
